FAERS Safety Report 9264813 (Version 2)
Quarter: 2013Q2

REPORT INFORMATION
  Report Type: Spontaneous
  Country: FR (occurrence: None)
  Receive Date: 20130426
  Receipt Date: 20130611
  Transmission Date: 20140414
  Serious: Yes (Hospitalization, Other)
  Sender: FDA-Public Use
  Company Number: AUR-APL-2013-03298

PATIENT
  Age: 62 Year
  Sex: Female
  Weight: 74.38 kg

DRUGS (7)
  1. BISOPROLOL [Suspect]
     Indication: HEART RATE INCREASED
     Dates: start: 2012
  2. TIKOSYN [Suspect]
     Indication: ATRIAL FIBRILLATION
     Dosage: 6 DOSAGE FORMS (3 DOSAGE FORMS,2 IN 1 D)
     Route: 048
     Dates: start: 201112
  3. ASPIRIN (ACETYLSALICYLIC ACID) [Suspect]
     Indication: OSTEOARTHRITIS
     Dates: start: 2005, end: 2011
  4. LOVAZA [Suspect]
     Indication: SUPPLEMENTATION THERAPY
     Dosage: 2 GM (1 GM, 2 IN 1 D)
     Route: 048
  5. XARELTO (RIVAROXABAN) [Concomitant]
     Indication: ANTICOAGULANT THERAPY
     Dates: start: 201110, end: 201110
  6. NIASPAN (NICOTINIC ACID) [Concomitant]
  7. PRADAXA [Suspect]
     Indication: ANTICOAGULANT THERAPY
     Dates: start: 201110, end: 201110

REACTIONS (33)
  - Drug intolerance [None]
  - Muscle disorder [None]
  - Weight increased [None]
  - Atrial fibrillation [None]
  - Accident [None]
  - Fall [None]
  - Cardiomegaly [None]
  - Drug ineffective [None]
  - Heart rate increased [None]
  - Nausea [None]
  - Adverse reaction [None]
  - Asthenia [None]
  - Ill-defined disorder [None]
  - Somnolence [None]
  - Blood cholesterol increased [None]
  - Blood glucose increased [None]
  - Thyroid function test abnormal [None]
  - Musculoskeletal pain [None]
  - Pain in extremity [None]
  - Pain in extremity [None]
  - Pain [None]
  - Abasia [None]
  - Muscle spasms [None]
  - Muscle spasms [None]
  - Motor dysfunction [None]
  - Asthma [None]
  - Laboratory test abnormal [None]
  - Treatment noncompliance [None]
  - Inappropriate schedule of drug administration [None]
  - Joint stiffness [None]
  - Arthritis [None]
  - Mobility decreased [None]
  - Bedridden [None]
